FAERS Safety Report 7517018-2 (Version None)
Quarter: 2011Q2

REPORT INFORMATION
  Report Type: 
  Country: None (occurrence: None)
  Receive Date: 20110502
  Receipt Date: 20110316
  Transmission Date: 20111010
  Serious: Yes (Other)
  Sender: FDA-Public Use
  Company Number: AMAG201100087

PATIENT
  Age: 33 Year
  Sex: Male
  Weight: 158.7 kg

DRUGS (6)
  1. FERAHEME [Suspect]
     Indication: RENAL FAILURE CHRONIC
     Dosage: 510 MG, SINGLE, INTRAVENOUS
     Route: 042
     Dates: start: 20110316, end: 20110316
  2. AMLODIPINE (AMLODIPINE MALEATE) [Concomitant]
  3. SODIUM BICARBONATE IN PLASTIC CONTAINER [Concomitant]
  4. IBUPROFEN (ADVIL) [Concomitant]
  5. PRAVASTATIN [Concomitant]
  6. CALCITROL (CALCIUM CARBONATE, ERGOCALCIFEROL, RETINOL) [Concomitant]

REACTIONS (1)
  - HYPOTENSION [None]
